FAERS Safety Report 7995076-9 (Version None)
Quarter: 2011Q4

REPORT INFORMATION
  Report Type: 
  Country: None (occurrence: None)
  Receive Date: 20111220
  Receipt Date: 20111213
  Transmission Date: 20120403
  Serious: Yes (Hospitalization)
  Sender: FDA-Public Use
  Company Number: US-GLAXOSMITHKLINE-A0906259A

PATIENT
  Age: 52 Year
  Sex: Male
  Weight: 134.5 kg

DRUGS (1)
  1. AVANDIA [Suspect]
     Indication: DIABETES MELLITUS
     Dosage: 4MG PER DAY
     Route: 048
     Dates: start: 20010501, end: 20070901

REACTIONS (7)
  - CEREBROVASCULAR DISORDER [None]
  - MYOCARDIAL ISCHAEMIA [None]
  - STENT PLACEMENT [None]
  - CARDIAC DISORDER [None]
  - PERCUTANEOUS CORONARY INTERVENTION [None]
  - CEREBROVASCULAR ACCIDENT [None]
  - HYPERLIPIDAEMIA [None]
